FAERS Safety Report 6937617-6 (Version None)
Quarter: 2010Q3

REPORT INFORMATION
  Report Type: 
  Country: None (occurrence: None)
  Receive Date: 20100823
  Receipt Date: 20100823
  Transmission Date: 20110219
  Serious: Yes (Life-Threatening)
  Sender: FDA-Public Use
  Company Number: None

PATIENT
  Age: 69 Year
  Sex: Male
  Weight: 120.5 kg

DRUGS (2)
  1. SEPTOCAINE [Suspect]
     Indication: DENTAL CLEANING
     Dates: start: 20100813
  2. LIDOCAINE [Suspect]

REACTIONS (1)
  - ANAPHYLACTIC SHOCK [None]
